FAERS Safety Report 14404739 (Version 2)
Quarter: 2018Q1

REPORT INFORMATION
  Report Type: Spontaneous
  Country: DE (occurrence: DE)
  Receive Date: 20180118
  Receipt Date: 20180301
  Transmission Date: 20180509
  Serious: Yes (Hospitalization, Other)
  Sender: FDA-Public Use
  Company Number: DE-AMGEN-DEUSP2018006436

PATIENT
  Age: 71 Year
  Sex: Male

DRUGS (12)
  1. ALENDRONIC ACID [Concomitant]
     Active Substance: ALENDRONIC ACID
     Dosage: UNK UNK, 1X/WEEK
  2. METOPROLOL. [Concomitant]
     Active Substance: METOPROLOL
     Dosage: UNK
  3. CORTISON [Concomitant]
     Active Substance: CORTISONE ACETATE
     Dosage: 5 MG, DAILY
  4. ARCOXIA [Concomitant]
     Active Substance: ETORICOXIB
     Dosage: UNK, AS NECESSARY
  5. MARCUMAR [Concomitant]
     Active Substance: PHENPROCOUMON
     Dosage: UNK
  6. CORTISON [Concomitant]
     Active Substance: CORTISONE ACETATE
     Dosage: 30 MG UNK, (PULSE THERAPY 3 TIMES 30 MG  )
  7. TAMSULOSIN [Concomitant]
     Active Substance: TAMSULOSIN
     Dosage: 1X/WEEK
  8. TOCILIZUMAB. [Suspect]
     Active Substance: TOCILIZUMAB
     Indication: RHEUMATOID ARTHRITIS
     Dosage: 162 MG, WEEKLY
     Route: 058
     Dates: start: 20170322, end: 20170412
  9. ENBREL [Suspect]
     Active Substance: ETANERCEPT
     Indication: RHEUMATOID ARTHRITIS
     Dosage: UNK
     Route: 065
     Dates: start: 20170301
  10. FLECAINIDE [Concomitant]
     Active Substance: FLECAINIDE
     Dosage: UNK
  11. DEKRISTOL [Concomitant]
     Active Substance: CHOLECALCIFEROL
     Dosage: 1 DF, EVERY 2 WEEKS
  12. ALENDRONIC ACID [Concomitant]
     Active Substance: ALENDRONIC ACID
     Dosage: UNK UNK, 1X/WEEK

REACTIONS (5)
  - Diarrhoea [Recovered/Resolved]
  - Acute kidney injury [Unknown]
  - Discomfort [Recovered/Resolved]
  - Nosocomial infection [Unknown]
  - Adrenal gland cancer [Not Recovered/Not Resolved]
